FAERS Safety Report 13436639 (Version 2)
Quarter: 2017Q2

REPORT INFORMATION
  Report Type: Spontaneous
  Country: US (occurrence: US)
  Receive Date: 20170413
  Receipt Date: 20170509
  Transmission Date: 20170830
  Serious: Yes (Other)
  Sender: FDA-Public Use
  Company Number: US-ST. RENATUS-2017STR00013

PATIENT
  Age: 70 Year
  Sex: Male

DRUGS (1)
  1. KOVANAZE [Suspect]
     Active Substance: OXYMETAZOLINE HYDROCHLORIDE\TETRACAINE HYDROCHLORIDE
     Indication: DENTAL OPERATION
     Dosage: 2 SPRAYS, ONCE IN EACH NOSTRIL
     Route: 045
     Dates: start: 20170328, end: 20170328

REACTIONS (1)
  - Urinary retention [Recovered/Resolved]

NARRATIVE: CASE EVENT DATE: 20170328
